APPROVED DRUG PRODUCT: COLOVAGE
Active Ingredient: POLYETHYLENE GLYCOL 3350; POTASSIUM CHLORIDE; SODIUM BICARBONATE; SODIUM CHLORIDE; SODIUM SULFATE ANHYDROUS
Strength: 227.1GM/PACKET;2.82GM/PACKET;6.36GM/PACKET;5.53GM/PACKET;21.5GM/PACKET
Dosage Form/Route: FOR SUSPENSION;ORAL
Application: A071320 | Product #001
Applicant: DYNAPHARM INC
Approved: Apr 20, 1988 | RLD: No | RS: No | Type: DISCN